FAERS Safety Report 17701703 (Version 3)
Quarter: 2021Q2

REPORT INFORMATION
  Report Type: Spontaneous
  Country: US (occurrence: US)
  Receive Date: 20200424
  Receipt Date: 20210416
  Transmission Date: 20210716
  Serious: Yes (Other)
  Sender: FDA-Public Use
  Company Number: US-ASTRAZENECA-2020SE53430

PATIENT
  Age: 19899 Day
  Sex: Male
  Weight: 94.3 kg

DRUGS (50)
  1. NEXIUM [Suspect]
     Active Substance: ESOMEPRAZOLE MAGNESIUM
     Indication: GASTROOESOPHAGEAL REFLUX DISEASE
     Route: 048
     Dates: start: 200302, end: 200604
  2. ACIPHEX [Suspect]
     Active Substance: RABEPRAZOLE SODIUM
     Indication: DYSPEPSIA
     Route: 065
     Dates: start: 20080208, end: 20111125
  3. YN THYROID [Concomitant]
     Indication: THYROID DISORDER
     Dates: start: 199705
  4. NEXIUM [Suspect]
     Active Substance: ESOMEPRAZOLE MAGNESIUM
     Indication: GASTROOESOPHAGEAL REFLUX DISEASE
     Route: 048
     Dates: start: 20030221, end: 20060421
  5. BROMFED [Concomitant]
     Active Substance: BROMPHENIRAMINE MALEATE\DEXTROMETHORPHAN HYDROBROMIDE\PSEUDOEPHEDRINE HYDROCHLORIDE
     Indication: SEASONAL ALLERGY
     Dates: start: 199809, end: 2001
  6. ATORVASTATIN [Concomitant]
     Active Substance: ATORVASTATIN
  7. MELOXICAM. [Concomitant]
     Active Substance: MELOXICAM
  8. FISH OIL [Concomitant]
     Active Substance: FISH OIL
  9. FLONASE [Concomitant]
     Active Substance: FLUTICASONE PROPIONATE
  10. BENZONATATE. [Concomitant]
     Active Substance: BENZONATATE
  11. NEXIUM [Suspect]
     Active Substance: ESOMEPRAZOLE MAGNESIUM
     Indication: DYSPEPSIA
     Route: 048
     Dates: start: 20030221
  12. NEXIUM [Suspect]
     Active Substance: ESOMEPRAZOLE MAGNESIUM
     Indication: GASTROOESOPHAGEAL REFLUX DISEASE
     Route: 048
     Dates: start: 20030221
  13. LIPITOR [Concomitant]
     Active Substance: ATORVASTATIN CALCIUM
     Indication: BLOOD CHOLESTEROL ABNORMAL
     Dates: start: 199901, end: 200401
  14. CLARITIN [Concomitant]
     Active Substance: LORATADINE
     Indication: SEASONAL ALLERGY
     Dates: start: 199705, end: 2001
  15. ORUVAIL [Concomitant]
     Active Substance: KETOPROFEN
     Indication: PAIN
     Dates: start: 1997
  16. ALLOPURINOL. [Concomitant]
     Active Substance: ALLOPURINOL
  17. TELMISARTAN. [Concomitant]
     Active Substance: TELMISARTAN
  18. DULOXETINE. [Concomitant]
     Active Substance: DULOXETINE
  19. PREVACID [Suspect]
     Active Substance: LANSOPRAZOLE
     Indication: DYSPEPSIA
     Route: 065
     Dates: start: 2002
  20. ACIPHEX [Suspect]
     Active Substance: RABEPRAZOLE SODIUM
     Indication: GASTROOESOPHAGEAL REFLUX DISEASE
     Route: 065
     Dates: start: 20080208, end: 20111125
  21. VITAMIN E [Concomitant]
     Active Substance: .ALPHA.-TOCOPHEROL
  22. MICARDIS [Concomitant]
     Active Substance: TELMISARTAN
  23. DIAZEPAM. [Concomitant]
     Active Substance: DIAZEPAM
  24. CELEBREX [Concomitant]
     Active Substance: CELECOXIB
  25. VYTORIN [Concomitant]
     Active Substance: EZETIMIBE\SIMVASTATIN
  26. PREVACID [Suspect]
     Active Substance: LANSOPRAZOLE
     Indication: GASTROOESOPHAGEAL REFLUX DISEASE
     Route: 065
     Dates: start: 20021101, end: 20021127
  27. COZAAR [Concomitant]
     Active Substance: LOSARTAN POTASSIUM
     Indication: BLOOD PRESSURE ABNORMAL
     Dates: start: 200208, end: 20030701
  28. ERY?TAB [Concomitant]
     Active Substance: ERYTHROMYCIN
     Dates: start: 199801, end: 2001
  29. CEPHALEXIN. [Concomitant]
     Active Substance: CEPHALEXIN
  30. ERGOCALCIFEROL. [Concomitant]
     Active Substance: ERGOCALCIFEROL
  31. PREVACID [Suspect]
     Active Substance: LANSOPRAZOLE
     Indication: DYSPEPSIA
     Route: 065
     Dates: start: 20021101, end: 20021127
  32. ZOCOR [Concomitant]
     Active Substance: SIMVASTATIN
     Indication: SEASONAL ALLERGY
     Dates: start: 199705, end: 2001
  33. ZITHROMAX [Concomitant]
     Active Substance: AZITHROMYCIN DIHYDRATE
  34. NAPROXEN. [Concomitant]
     Active Substance: NAPROXEN
  35. PATANOL [Concomitant]
     Active Substance: OLOPATADINE HYDROCHLORIDE
  36. PRILOSEC OTC [Suspect]
     Active Substance: OMEPRAZOLE MAGNESIUM
     Route: 048
     Dates: start: 200302, end: 200604
  37. PREVACID [Suspect]
     Active Substance: LANSOPRAZOLE
     Indication: GASTROOESOPHAGEAL REFLUX DISEASE
     Route: 065
     Dates: start: 2002
  38. MICARDIS [Concomitant]
     Active Substance: TELMISARTAN
  39. LEVOTHYROXINE. [Concomitant]
     Active Substance: LEVOTHYROXINE
  40. COLCRYS [Concomitant]
     Active Substance: COLCHICINE
  41. NEXIUM [Suspect]
     Active Substance: ESOMEPRAZOLE MAGNESIUM
     Indication: DYSPEPSIA
     Route: 048
     Dates: start: 200302, end: 200604
  42. NEXIUM [Suspect]
     Active Substance: ESOMEPRAZOLE MAGNESIUM
     Indication: DYSPEPSIA
     Route: 048
     Dates: start: 20030221, end: 20060421
  43. TYLENOL [Concomitant]
     Active Substance: ACETAMINOPHEN
     Indication: HEADACHE
  44. SENNA?DOCUSATE [Concomitant]
     Active Substance: DOCUSATE SODIUM\SENNOSIDES
  45. SYNTHROID [Concomitant]
     Active Substance: LEVOTHYROXINE SODIUM
  46. GABAPENTIN. [Concomitant]
     Active Substance: GABAPENTIN
  47. MULTIVITAMIN [Concomitant]
     Active Substance: VITAMINS
  48. VIOXX [Concomitant]
     Active Substance: ROFECOXIB
  49. LAMISIL [Concomitant]
     Active Substance: TERBINAFINE HYDROCHLORIDE
  50. WARFARIN [Concomitant]
     Active Substance: WARFARIN

REACTIONS (3)
  - Chronic kidney disease [Not Recovered/Not Resolved]
  - Renal failure [Unknown]
  - End stage renal disease [Unknown]

NARRATIVE: CASE EVENT DATE: 20150509
